FAERS Safety Report 19745137 (Version 1)
Quarter: 2021Q3

REPORT INFORMATION
  Report Type: Spontaneous
  Country: ES (occurrence: ES)
  Receive Date: 20210825
  Receipt Date: 20210825
  Transmission Date: 20211014
  Serious: Yes (Hospitalization, Other)
  Sender: FDA-Public Use
  Company Number: ES-SA-2021SA280030

PATIENT
  Sex: Female
  Weight: 70 kg

DRUGS (1)
  1. LANTUS SOLOSTAR [Suspect]
     Active Substance: INSULIN GLARGINE
     Indication: TYPE 2 DIABETES MELLITUS
     Dosage: 4 IU, QD(4 IU/C24H)
     Route: 058
     Dates: start: 2011

REACTIONS (8)
  - Cataract [Not Recovered/Not Resolved]
  - Nephrolithiasis [Unknown]
  - Post procedural complication [Unknown]
  - Cardiac disorder [Unknown]
  - Adnexa uteri pain [Unknown]
  - Vision blurred [Not Recovered/Not Resolved]
  - Visual impairment [Not Recovered/Not Resolved]
  - Myalgia [Unknown]
